FAERS Safety Report 8413392-3 (Version None)
Quarter: 2012Q2

REPORT INFORMATION
  Report Type: 
  Country: None (occurrence: None)
  Receive Date: 20120605
  Receipt Date: 20120529
  Transmission Date: 20120825
  Serious: Yes (Hospitalization)
  Sender: FDA-Public Use
  Company Number: PHHO2012US008169

PATIENT
  Sex: Female

DRUGS (14)
  1. DIPHENHYDRAMINE HCL [Concomitant]
     Dosage: 50 MG, UNK
     Dates: start: 20120511, end: 20120511
  2. HYDROMORPHONE HCL [Concomitant]
     Dosage: UNK
     Dates: start: 20120511
  3. ACETAMINOPHEN [Concomitant]
     Dosage: UNK
     Dates: start: 20120514
  4. NEULASTA [Suspect]
     Indication: NEOPLASM
     Dosage: 6 MG, UNK
     Dates: end: 20120512
  5. DEXAMETHASONE [Concomitant]
     Dosage: UNK
     Dates: start: 20120512
  6. PALONOSETRON HYDROCHLORIDE [Concomitant]
     Dosage: 250 MG, UNK
     Dates: start: 20120511, end: 20120511
  7. BKM120 [Suspect]
     Indication: NEOPLASM
     Dosage: 100 MG, QD
     Route: 048
     Dates: start: 20120511, end: 20120521
  8. CARBOPLATIN [Suspect]
     Indication: NEOPLASM
     Dosage: 175 MG/M2, UNK
     Dates: end: 20120511
  9. METOCLOPRAMIDE [Concomitant]
     Dosage: UNK
     Dates: start: 20120515
  10. DOCUSATE SODIUM [Concomitant]
     Dosage: UNK
     Dates: start: 20120514
  11. FAMOTIDINE [Concomitant]
     Dosage: 20 MG, UNK
     Dates: start: 20120511, end: 20120511
  12. TAXOL [Suspect]
     Indication: NEOPLASM
     Dosage: 175 MG/M2, UNK
     Dates: end: 20120511
  13. CETIRIZINE HCL [Concomitant]
     Dosage: UNK
     Dates: start: 20120525
  14. ONDANSETRON [Concomitant]
     Dosage: UNK
     Dates: start: 20120511

REACTIONS (3)
  - DYSPHAGIA [None]
  - FACE OEDEMA [None]
  - RASH MACULO-PAPULAR [None]
